FAERS Safety Report 16281785 (Version 2)
Quarter: 2019Q2

REPORT INFORMATION
  Report Type: Report from Study
  Country: AR (occurrence: AR)
  Receive Date: 20190507
  Receipt Date: 20190603
  Transmission Date: 20190711
  Serious: Yes (Hospitalization, Other)
  Sender: FDA-Public Use
  Company Number: AR-AMGEN-ARGCT2019068534

PATIENT
  Age: 62 Year
  Sex: Female

DRUGS (17)
  1. DARBEPOETIN ALFA [Suspect]
     Active Substance: DARBEPOETIN ALFA
     Dosage: 20 MICROGRAM, Q2WK
     Route: 058
     Dates: start: 20180730, end: 20180812
  2. DARBEPOETIN ALFA [Suspect]
     Active Substance: DARBEPOETIN ALFA
     Dosage: 40 MICROGRAM, Q2WK
     Route: 058
     Dates: start: 20181203, end: 20181217
  3. DARBEPOETIN ALFA [Suspect]
     Active Substance: DARBEPOETIN ALFA
     Indication: ANAEMIA
     Dosage: 50 MICROGRAM, Q2WK
     Route: 058
     Dates: start: 20180409, end: 20180520
  4. DARBEPOETIN ALFA [Suspect]
     Active Substance: DARBEPOETIN ALFA
     Dosage: 50 MICROGRAM, Q2WK
     Route: 058
     Dates: start: 20181105, end: 20181202
  5. INSULIN [Concomitant]
     Active Substance: INSULIN NOS
     Dosage: UNK
     Dates: start: 2015
  6. DARBEPOETIN ALFA [Suspect]
     Active Substance: DARBEPOETIN ALFA
     Dosage: 40 MICROGRAM, Q2WK
     Route: 058
     Dates: start: 20180521, end: 20180603
  7. DARBEPOETIN ALFA [Suspect]
     Active Substance: DARBEPOETIN ALFA
     Dosage: 30 MICROGRAM, Q2WK
     Route: 058
     Dates: start: 20180604, end: 20180701
  8. DARBEPOETIN ALFA [Suspect]
     Active Substance: DARBEPOETIN ALFA
     Dosage: 20 MICROGRAM, Q2WK
     Route: 058
     Dates: start: 20180702, end: 20180722
  9. HYDROCHLOROTHIAZIDE. [Concomitant]
     Active Substance: HYDROCHLOROTHIAZIDE
     Dosage: UNK
     Dates: start: 2015
  10. DARBEPOETIN ALFA [Suspect]
     Active Substance: DARBEPOETIN ALFA
     Dosage: 25 MICROGRAM, Q2WK
     Route: 058
     Dates: start: 20180813, end: 20180909
  11. ENALAPRIL [Concomitant]
     Active Substance: ENALAPRIL
     Dosage: UNK
     Dates: start: 2013
  12. DARBEPOETIN ALFA [Suspect]
     Active Substance: DARBEPOETIN ALFA
     Dosage: 40 MICROGRAM, Q2WK
     Route: 058
     Dates: start: 20181001, end: 20181104
  13. DARBEPOETIN ALFA [Suspect]
     Active Substance: DARBEPOETIN ALFA
     Dosage: 20 MICROGRAM, Q2WK
     Route: 058
     Dates: start: 20190218
  14. FUROSEMIDE. [Concomitant]
     Active Substance: FUROSEMIDE
     Dosage: UNK
     Dates: start: 20180405
  15. ATORVASTATIN [Concomitant]
     Active Substance: ATORVASTATIN
     Dosage: UNK
     Dates: start: 20180901
  16. DARBEPOETIN ALFA [Suspect]
     Active Substance: DARBEPOETIN ALFA
     Dosage: 30 MICROGRAM, Q2WK
     Route: 058
     Dates: start: 20180910, end: 20180930
  17. DARBEPOETIN ALFA [Suspect]
     Active Substance: DARBEPOETIN ALFA
     Dosage: 30 MICROGRAM, Q2WK
     Route: 058
     Dates: start: 20181218, end: 20190217

REACTIONS (2)
  - Skin ulcer [Recovered/Resolved]
  - Pneumonia [Recovered/Resolved]

NARRATIVE: CASE EVENT DATE: 20190312
